FAERS Safety Report 8937630 (Version 4)
Quarter: 2013Q2

REPORT INFORMATION
  Report Type: Spontaneous
  Country: JP (occurrence: JP)
  Receive Date: 20121130
  Receipt Date: 20130603
  Transmission Date: 20140414
  Serious: Yes (Death, Life-Threatening, Hospitalization)
  Sender: FDA-Public Use
  Company Number: JP-B.I. PHARMACEUTICALS,INC./RIDGEFIELD-2012-BI-01894NB

PATIENT
  Age: 70 Year
  Sex: Female
  Weight: 61.1 kg

DRUGS (6)
  1. TRAZENTA [Suspect]
     Indication: DIABETES MELLITUS
     Dosage: 5 MG
     Route: 048
     Dates: start: 20121030, end: 20121127
  2. VASOLAN [Concomitant]
     Indication: ARRHYTHMIA PROPHYLAXIS
     Dosage: 120 MG
     Route: 048
     Dates: start: 20120605, end: 20121127
  3. CALONAL [Concomitant]
     Indication: SPINAL OSTEOARTHRITIS
     Dosage: 300 MG
     Route: 048
     Dates: start: 201102, end: 20121110
  4. MUCOSTA [Concomitant]
     Indication: GASTRITIS PROPHYLAXIS
     Dosage: 100 MG
     Route: 048
     Dates: start: 20120910, end: 20121110
  5. PRONON [Concomitant]
     Indication: ARRHYTHMIA PROPHYLAXIS
     Dosage: 150 MG
     Route: 048
     Dates: start: 20120711, end: 20121110
  6. TAKEPRON [Concomitant]
     Indication: PROPHYLAXIS AGAINST GASTROINTESTINAL ULCER
     Dosage: 30 MG
     Route: 048
     Dates: start: 20120507, end: 20121110

REACTIONS (2)
  - Hepatic failure [Fatal]
  - Multi-organ failure [Fatal]
